FAERS Safety Report 14939431 (Version 1)
Quarter: 2018Q2

REPORT INFORMATION
  Report Type: Other
  Country: HR (occurrence: HR)
  Receive Date: 20180525
  Receipt Date: 20180525
  Transmission Date: 20180711
  Serious: Yes (Hospitalization)
  Sender: FDA-Public Use
  Company Number: HR-CELLTRION INC.-2018HR019918

PATIENT

DRUGS (13)
  1. DECORTIN [Suspect]
     Active Substance: PREDNISONE
     Dosage: 20 MG, DAILY
     Route: 065
  2. METHOTREXATE. [Suspect]
     Active Substance: METHOTREXATE
     Dosage: 15 MG,QW
     Route: 048
  3. CIMZIA [Suspect]
     Active Substance: CERTOLIZUMAB PEGOL
     Indication: POLYARTHRITIS
     Dosage: UNK
     Route: 065
     Dates: start: 201602, end: 201605
  4. METHOTREXATE. [Suspect]
     Active Substance: METHOTREXATE
     Indication: POLYARTHRITIS
     Dosage: 20 MG, QW
     Route: 065
  5. LEFLUNOMIDE. [Suspect]
     Active Substance: LEFLUNOMIDE
     Indication: POLYARTHRITIS
     Dosage: 20 MG, SSZ 2X2
     Route: 065
  6. DECORTIN [Suspect]
     Active Substance: PREDNISONE
     Dosage: 10 UNK
     Route: 065
  7. SULPHASALAZINE [Suspect]
     Active Substance: SULFASALAZINE
     Indication: POLYARTHRITIS
     Dosage: 2X2 TBL
     Route: 065
  8. LEFLUNOMIDE. [Suspect]
     Active Substance: LEFLUNOMIDE
     Dosage: 20 MG, DAILY
     Route: 065
  9. DECORTIN [Suspect]
     Active Substance: PREDNISONE
     Indication: POLYARTHRITIS
     Dosage: 15 MG
     Route: 065
  10. EBETREXAT                          /00113801/ [Suspect]
     Active Substance: METHOTREXATE SODIUM
     Indication: POLYARTHRITIS
     Dosage: 15 MG
     Route: 058
  11. INFLIXIMAB (UNKNOWN) [Suspect]
     Active Substance: INFLIXIMAB
     Indication: POLYARTHRITIS
     Dosage: 5 MG/KG, EVERY 8 WEEKS
     Route: 042
  12. DECORTIN [Suspect]
     Active Substance: PREDNISONE
     Dosage: 30 UNK
     Route: 065
  13. FOLACIN                            /00024201/ [Suspect]
     Active Substance: FOLIC ACID
     Indication: POLYARTHRITIS
     Dosage: 10 MG, DAILY
     Route: 065

REACTIONS (11)
  - Dermatitis psoriasiform [Recovering/Resolving]
  - Joint contracture [Recovering/Resolving]
  - Crying [Unknown]
  - Musculoskeletal stiffness [Recovered/Resolved]
  - Spondylitis [Recovering/Resolving]
  - Inflammatory marker increased [Recovering/Resolving]
  - Disease progression [Recovered/Resolved]
  - Sacroiliitis [Recovering/Resolving]
  - General physical health deterioration [Unknown]
  - Depression [Recovered/Resolved]
  - Pain [Recovered/Resolved]

NARRATIVE: CASE EVENT DATE: 20170123
